FAERS Safety Report 7498692-6 (Version None)
Quarter: 2011Q2

REPORT INFORMATION
  Report Type: 
  Country: None (occurrence: None)
  Receive Date: 20110516
  Receipt Date: 20110429
  Transmission Date: 20111010
  Serious: Yes (Other)
  Sender: FDA-Public Use
  Company Number: AUR-APL-2011-01560

PATIENT
  Age: 60 Year
  Sex: Male
  Weight: 83.9 kg

DRUGS (4)
  1. FINASTERIDE [Suspect]
     Indication: DIHYDROTESTOSTERONE INCREASED
     Dosage: 5MG - BID- ORAL
     Route: 048
     Dates: start: 20020101
  2. CRESTOR [Concomitant]
  3. CASODEX [Concomitant]
  4. LUPRON [Concomitant]

REACTIONS (1)
  - DIHYDROTESTOSTERONE INCREASED [None]
